FAERS Safety Report 15570757 (Version 1)
Quarter: 2018Q4

REPORT INFORMATION
  Report Type: Spontaneous
  Country: EG (occurrence: EG)
  Receive Date: 20181031
  Receipt Date: 20181031
  Transmission Date: 20190205
  Serious: Yes (Life-Threatening, Hospitalization, Disabling, Other)
  Sender: FDA-Public Use
  Company Number: PHHY2018EG142859

PATIENT
  Age: 60 Year
  Sex: Male

DRUGS (4)
  1. STATIN [Concomitant]
     Active Substance: UNSPECIFIED INGREDIENT
     Indication: PRODUCT USED FOR UNKNOWN INDICATION
     Dosage: UNK
     Route: 065
  2. EXAMIDE [Concomitant]
     Indication: PRODUCT USED FOR UNKNOWN INDICATION
     Dosage: UNK
     Route: 065
  3. ASPIRIN. [Concomitant]
     Active Substance: ASPIRIN
     Indication: PRODUCT USED FOR UNKNOWN INDICATION
     Dosage: UNK
     Route: 065
  4. ENTRESTO [Suspect]
     Active Substance: SACUBITRIL\VALSARTAN
     Indication: CARDIAC FAILURE CHRONIC
     Dosage: 50 MG, BID
     Route: 048
     Dates: start: 201808, end: 20181031

REACTIONS (12)
  - Cerebrovascular accident [Recovered/Resolved with Sequelae]
  - Loss of consciousness [Unknown]
  - Dizziness [Unknown]
  - Sensory loss [Unknown]
  - Hypoacusis [Unknown]
  - Balance disorder [Unknown]
  - Gait disturbance [Unknown]
  - Dysarthria [Recovering/Resolving]
  - Paralysis [Recovering/Resolving]
  - Dysphagia [Unknown]
  - Oedema [Recovering/Resolving]
  - Confusional state [Unknown]

NARRATIVE: CASE EVENT DATE: 201809
